FAERS Safety Report 14373732 (Version 1)
Quarter: 2018Q1

REPORT INFORMATION
  Report Type: Spontaneous
  Country: GB (occurrence: GB)
  Receive Date: 20180110
  Receipt Date: 20180110
  Transmission Date: 20180509
  Serious: Yes (Hospitalization, Other)
  Sender: FDA-Public Use
  Company Number: GB-MYLANLABS-2017M1078806

PATIENT
  Sex: Male

DRUGS (2)
  1. CLOZARIL [Suspect]
     Active Substance: CLOZAPINE
     Dosage: UNK
     Route: 048
     Dates: start: 20030915, end: 2017
  2. CLOZARIL [Suspect]
     Active Substance: CLOZAPINE
     Indication: SCHIZOPHRENIA
     Dosage: 500 MG, QD
     Route: 048
     Dates: start: 2002

REACTIONS (4)
  - Cardiomyopathy [Unknown]
  - Affect lability [Recovering/Resolving]
  - Confusional state [Recovering/Resolving]
  - Psychotic symptom [Recovering/Resolving]

NARRATIVE: CASE EVENT DATE: 2017
